FAERS Safety Report 5151461-4 (Version None)
Quarter: 2006Q4

REPORT INFORMATION
  Report Type: 
  Country: None (occurrence: None)
  Receive Date: 20061115
  Receipt Date: 20061102
  Transmission Date: 20070319
  Serious: Yes (Life-Threatening, Other)
  Sender: FDA-Public Use
  Company Number: JP-ELI_LILLY_AND_COMPANY-JP200611000969

PATIENT
  Age: 82 Year
  Sex: Female

DRUGS (3)
  1. EVISTA [Suspect]
     Indication: OSTEOPOROSIS POSTMENOPAUSAL
     Route: 048
     Dates: start: 20060803, end: 20061031
  2. SERMION [Concomitant]
     Dosage: UNK, UNK
     Route: 048
     Dates: start: 20060912
  3. LANSOPRAZOLE [Concomitant]
     Route: 048
     Dates: start: 20060301

REACTIONS (4)
  - BLOOD PRESSURE INCREASED [None]
  - CEREBRAL INFARCTION [None]
  - FALL [None]
  - OXYGEN SATURATION DECREASED [None]
